FAERS Safety Report 21626659 (Version 2)
Quarter: 2022Q4

REPORT INFORMATION
  Report Type: Spontaneous
  Country: US (occurrence: US)
  Receive Date: 20221122
  Receipt Date: 20221202
  Transmission Date: 20230112
  Serious: Yes (Life-Threatening, Other)
  Sender: FDA-Public Use
  Company Number: US-NOVOPROD-927384

PATIENT
  Age: 76 Year
  Sex: Female

DRUGS (5)
  1. NOVOLOG MIX 70/30 [Suspect]
     Active Substance: INSULIN ASPART
     Indication: Product used for unknown indication
     Dosage: 20-24 UNITS TWICE DAILY (BID)
     Route: 058
     Dates: start: 2021
  2. NOVOLIN R [Suspect]
     Active Substance: INSULIN HUMAN
     Indication: Product used for unknown indication
     Dosage: UNK
     Route: 058
     Dates: start: 2021
  3. METFORMIN [Concomitant]
     Active Substance: METFORMIN HYDROCHLORIDE
     Indication: Product used for unknown indication
     Dosage: 1000 MG, QD (500 MG, BID)
     Route: 065
  4. ALOGLIPTIN [Concomitant]
     Active Substance: ALOGLIPTIN
     Indication: Product used for unknown indication
     Dosage: 25 MG, QD (ONCE IN THE MORNING)
     Route: 065
  5. GLIMEPIRIDE [Concomitant]
     Active Substance: GLIMEPIRIDE
     Indication: Product used for unknown indication
     Dosage: 4 MG, QD (2 MG TWICE A DAY)
     Route: 065

REACTIONS (6)
  - Blood glucose decreased [Recovered/Resolved]
  - Blood glucose decreased [Unknown]
  - Carpal tunnel syndrome [Not Recovered/Not Resolved]
  - Drug ineffective [Unknown]
  - Treatment noncompliance [Not Recovered/Not Resolved]
  - Blood glucose increased [Not Recovered/Not Resolved]

NARRATIVE: CASE EVENT DATE: 20220516
